FAERS Safety Report 24074491 (Version 1)
Quarter: 2024Q3

REPORT INFORMATION
  Report Type: Spontaneous
  Country: FR (occurrence: FR)
  Receive Date: 20240710
  Receipt Date: 20240710
  Transmission Date: 20241016
  Serious: No
  Sender: PIERRE FABRE MEDICAMENT
  Company Number: FR-PFM-2024-01434

PATIENT
  Age: 1 Month
  Sex: Male
  Weight: 4 kg

DRUGS (1)
  1. PROPRANOLOL HYDROCHLORIDE [Suspect]
     Active Substance: PROPRANOLOL HYDROCHLORIDE
     Indication: Product used for unknown indication
     Dosage: 3 G, BID (2/DAY) MORNING AND EVENING
     Route: 065

REACTIONS (4)
  - Feeding disorder [Unknown]
  - Irritability [Unknown]
  - Nightmare [Unknown]
  - Sleep disorder [Unknown]
